FAERS Safety Report 4384545-9 (Version None)
Quarter: 2004Q2

REPORT INFORMATION
  Report Type: 
  Country: None (occurrence: None)
  Receive Date: 20040607
  Receipt Date: 20030515
  Transmission Date: 20050107
  Serious: Yes (Other)
  Sender: FDA-Public Use
  Company Number: 338090

PATIENT

DRUGS (4)
  1. ACCUTANE [Suspect]
     Indication: DRUG USE FOR UNKNOWN INDICATION
     Dates: start: 19830615, end: 19830615
  2. ANTIBIOTICS (ANTIBIOTIC NOS) [Concomitant]
  3. BENZOYL PEROXIDE (BENZOYL PEROXIDE) [Concomitant]
  4. RETIN-A (TRETINOIN) [Concomitant]

REACTIONS (1)
  - LIVE BIRTH [None]
